FAERS Safety Report 4869812-4 (Version None)
Quarter: 2005Q4

REPORT INFORMATION
  Report Type: 
  Country: None (occurrence: None)
  Receive Date: 20051223
  Receipt Date: 20051216
  Transmission Date: 20060501
  Serious: Yes (Other)
  Sender: FDA-Public Use
  Company Number: S05-USA-05243-01

PATIENT
  Age: 78 Year
  Sex: Male

DRUGS (13)
  1. NAMENDA [Suspect]
     Indication: AMNESIA
     Dosage: 5 MG QD PO
     Route: 048
     Dates: start: 20051001, end: 20050101
  2. NAMENDA [Suspect]
     Indication: AMNESIA
     Dosage: 5 MG BID PO
     Route: 048
     Dates: start: 20050101, end: 20050101
  3. NAMENDA [Suspect]
     Indication: AMNESIA
     Dosage: 15 MG QD PO
     Route: 048
     Dates: start: 20050101, end: 20050101
  4. NAMENDA [Suspect]
     Indication: AMNESIA
     Dosage: 10 MG BID PO
     Route: 048
     Dates: start: 20050101, end: 20051211
  5. COREG [Concomitant]
  6. BUMEX [Concomitant]
  7. VYTORIN [Concomitant]
  8. FLOMAX [Concomitant]
  9. FOSAMAX [Concomitant]
  10. ENABLEX (DARIFENACIN) [Concomitant]
  11. ARICEPT [Concomitant]
  12. SPIRONOLACTONE [Concomitant]
  13. ZONEGRAN [Concomitant]

REACTIONS (4)
  - CONDITION AGGRAVATED [None]
  - DIFFICULTY IN WALKING [None]
  - DYSKINESIA [None]
  - PARKINSONISM [None]
